FAERS Safety Report 8176185-0 (Version None)
Quarter: 2012Q1

REPORT INFORMATION
  Report Type: 
  Country: None (occurrence: None)
  Receive Date: 20120301
  Receipt Date: 20120221
  Transmission Date: 20120608
  Serious: Yes (Hospitalization, Other)
  Sender: FDA-Public Use
  Company Number: CA-JNJFOC-20120211349

PATIENT
  Sex: Female
  Weight: 70 kg

DRUGS (5)
  1. MESASAL [Concomitant]
     Route: 065
  2. FLAGYL [Concomitant]
     Route: 065
  3. REMICADE [Suspect]
     Indication: CROHN'S DISEASE
     Route: 042
     Dates: start: 20071024
  4. IRON MEDICINE [Concomitant]
     Route: 065
  5. PREVACID [Concomitant]
     Route: 065

REACTIONS (5)
  - PYREXIA [None]
  - INTESTINAL PERFORATION [None]
  - HEADACHE [None]
  - ASTHENIA [None]
  - ABDOMINAL PAIN [None]
